FAERS Safety Report 24793569 (Version 1)
Quarter: 2024Q4

REPORT INFORMATION
  Report Type: Spontaneous
  Country: CH (occurrence: CH)
  Receive Date: 20241231
  Receipt Date: 20241231
  Transmission Date: 20250115
  Serious: Yes (Hospitalization, Other)
  Sender: PFIZER
  Company Number: None

PATIENT
  Age: 71 Year
  Sex: Male

DRUGS (5)
  1. INLYTA [Suspect]
     Active Substance: AXITINIB
     Indication: Metastatic renal cell carcinoma
     Route: 048
     Dates: start: 20241017, end: 202410
  2. KEYTRUDA [Suspect]
     Active Substance: PEMBROLIZUMAB
     Indication: Metastatic renal cell carcinoma
     Route: 040
     Dates: start: 20241017, end: 202410
  3. OPDIVO [Suspect]
     Active Substance: NIVOLUMAB
     Dosage: UNK
     Route: 040
     Dates: start: 202209, end: 20241002
  4. LENVATINIB [Suspect]
     Active Substance: LENVATINIB
     Dosage: START AT LEAST 08/2024, IF/WHEN STOP UNKNOWN
     Route: 048
     Dates: start: 202408
  5. YERVOY [Suspect]
     Active Substance: IPILIMUMAB
     Dosage: UNK
     Dates: end: 20221111

REACTIONS (5)
  - Immune-mediated encephalitis [Recovering/Resolving]
  - Immune-mediated myocarditis [Recovering/Resolving]
  - Immune-mediated hypophysitis [Recovering/Resolving]
  - Immune-mediated arthritis [Recovering/Resolving]
  - Dermatitis [Recovering/Resolving]

NARRATIVE: CASE EVENT DATE: 20241021
